FAERS Safety Report 5082585-8 (Version None)
Quarter: 2006Q3

REPORT INFORMATION
  Report Type: 
  Country: None (occurrence: None)
  Receive Date: 20060817
  Receipt Date: 20060808
  Transmission Date: 20061208
  Serious: Yes (Other)
  Sender: FDA-Public Use
  Company Number: US-JNJFOC-20060504728

PATIENT
  Sex: Female
  Weight: 68.04 kg

DRUGS (5)
  1. DURAGESIC-100 [Suspect]
     Indication: PAIN
     Route: 062
  2. DILANTIN [Concomitant]
     Indication: CONVULSION
     Route: 048
  3. KEPPRA [Concomitant]
     Indication: CONVULSION
     Route: 048
  4. ACTIQ (SUGAR-FREE) [Concomitant]
     Indication: BREAKTHROUGH PAIN
     Route: 048
  5. OXYIR [Concomitant]
     Indication: BREAKTHROUGH PAIN
     Route: 048

REACTIONS (3)
  - APPLICATION SITE ERYTHEMA [None]
  - CONVULSION [None]
  - DEPRESSION [None]
